FAERS Safety Report 7619277-4 (Version None)
Quarter: 2011Q3

REPORT INFORMATION
  Report Type: 
  Country: None (occurrence: None)
  Receive Date: 20110718
  Receipt Date: 20110708
  Transmission Date: 20111222
  Serious: Yes (Other)
  Sender: FDA-Public Use
  Company Number: US-ASTRAZENECA-2011SE41513

PATIENT
  Sex: Female

DRUGS (2)
  1. PRILOSEC [Suspect]
     Indication: GASTROOESOPHAGEAL REFLUX DISEASE
     Route: 065
     Dates: start: 19950101, end: 20100101
  2. NEXIUM [Suspect]
     Indication: GASTROOESOPHAGEAL REFLUX DISEASE
     Route: 048
     Dates: start: 19950101, end: 20100101

REACTIONS (5)
  - PAIN IN EXTREMITY [None]
  - OSTEOPOROSIS [None]
  - FOOT FRACTURE [None]
  - MENTAL DISORDER [None]
  - PAIN [None]
